FAERS Safety Report 25391785 (Version 1)
Quarter: 2025Q2

REPORT INFORMATION
  Report Type: Spontaneous
  Country: DE (occurrence: DE)
  Receive Date: 20250603
  Receipt Date: 20250603
  Transmission Date: 20250717
  Serious: Yes (Life-Threatening, Hospitalization, Other)
  Sender: SANDOZ
  Company Number: DE-002147023-NVSC2020DE087924

PATIENT
  Age: 63 Year
  Sex: Female
  Weight: 93 kg

DRUGS (12)
  1. LEFLUNOMIDE [Suspect]
     Active Substance: LEFLUNOMIDE
     Indication: Rheumatoid arthritis
     Dosage: 20 MG, QD FOR 6 YEARS
     Route: 048
     Dates: start: 2014
  2. METHOTREXATE [Suspect]
     Active Substance: METHOTREXATE
     Indication: Rheumatoid arthritis
     Dosage: 15 MG, QW
     Route: 048
     Dates: start: 2012
  3. FOLIC ACID [Concomitant]
     Active Substance: FOLIC ACID
     Indication: Rheumatoid arthritis
     Dosage: 5 MG ON THE DAY AFTER THE METHOTREXATE ADMINISTRATION FOR 8 YEARS
     Route: 048
  4. FUROSEMIDE [Concomitant]
     Active Substance: FUROSEMIDE
     Indication: Product used for unknown indication
     Dosage: 40 MG, QD FOR 4 WEEKS
     Route: 048
  5. INSULIN NOS [Concomitant]
     Active Substance: INSULIN NOS
     Indication: Type 2 diabetes mellitus
     Route: 065
  6. IRON [Concomitant]
     Active Substance: IRON
     Indication: Mineral supplementation
     Route: 065
  7. METAMIZOLE [Concomitant]
     Active Substance: METAMIZOLE
     Indication: Analgesic therapy
     Route: 065
  8. METAMIZOLE [Concomitant]
     Active Substance: METAMIZOLE
     Indication: Pain
  9. PANTOPRAZOLE [Concomitant]
     Active Substance: PANTOPRAZOLE
     Dosage: 40 MG, QD
     Route: 048
  10. PANTOPRAZOLE [Concomitant]
     Active Substance: PANTOPRAZOLE
     Indication: Chronic gastritis
     Dosage: 40 MG, BID
     Route: 065
  11. SIMVASTATIN [Concomitant]
     Active Substance: SIMVASTATIN
     Indication: Hyperlipidaemia
     Dosage: 20 MG, QD
     Route: 048
  12. SIMVASTATIN [Concomitant]
     Active Substance: SIMVASTATIN
     Indication: Dyslipidaemia

REACTIONS (38)
  - Thrombotic microangiopathy [Recovering/Resolving]
  - Toxicity to various agents [Recovered/Resolved]
  - Drug-induced liver injury [Recovered/Resolved]
  - Metabolic alkalosis [Recovered/Resolved]
  - Hypovolaemia [Recovered/Resolved]
  - Hypokalaemia [Recovered/Resolved]
  - Respiratory alkalosis [Recovered/Resolved]
  - Sinus tachycardia [Recovered/Resolved]
  - Dyspnoea [Recovered/Resolved]
  - Skin discolouration [Recovered/Resolved]
  - Muscular weakness [Recovered/Resolved]
  - Drug interaction [Recovered/Resolved]
  - Skin haemorrhage [Unknown]
  - Acute hepatic failure [Recovered/Resolved]
  - Hepatic cirrhosis [Recovered/Resolved]
  - Overdose [Recovered/Resolved]
  - Hypoalbuminaemia [Recovered/Resolved]
  - Haemochromatosis [Recovered/Resolved]
  - Pneumonia influenzal [Recovered/Resolved]
  - Haemolytic anaemia [Recovered/Resolved]
  - Acute kidney injury [Recovered/Resolved]
  - Anaemia folate deficiency [Recovered/Resolved]
  - Escherichia urinary tract infection [Recovered/Resolved]
  - Nephrotic syndrome [Recovered/Resolved]
  - Pulmonary oedema [Recovered/Resolved]
  - Hepatosplenomegaly [Recovered/Resolved]
  - Coagulopathy [Recovered/Resolved]
  - Drug-induced liver injury [Recovered/Resolved]
  - Ascites [Recovered/Resolved]
  - Acute kidney injury [Recovered/Resolved]
  - Oedema peripheral [Recovered/Resolved]
  - Coombs negative haemolytic anaemia [Recovered/Resolved]
  - Thrombocytopenia [Recovered/Resolved]
  - Immunosuppressant drug level increased [Unknown]
  - Petechiae [Recovered/Resolved]
  - Erythema [Recovered/Resolved]
  - Oliguria [Recovered/Resolved]
  - Anaemia [Recovered/Resolved]
